FAERS Safety Report 8517485-1 (Version None)
Quarter: 2012Q3

REPORT INFORMATION
  Report Type: 
  Country: None (occurrence: None)
  Receive Date: 20120718
  Receipt Date: 20120712
  Transmission Date: 20120928
  Serious: Yes (Hospitalization)
  Sender: FDA-Public Use
  Company Number: DE-B.I. PHARMACEUTICALS,INC./RIDGEFIELD-2012-DE-01261DE

PATIENT
  Sex: Female
  Weight: 77.2 kg

DRUGS (5)
  1. AGGRENOX [Concomitant]
     Indication: PROPHYLAXIS
     Dosage: 2 ANZ
     Route: 048
     Dates: start: 20120501, end: 20120507
  2. PRADAXA [Suspect]
     Indication: ATRIAL FIBRILLATION
     Dosage: 220 MG
     Route: 048
     Dates: start: 20120507, end: 20120510
  3. MOXINIDIN [Concomitant]
     Indication: HYPERTENSION
     Dosage: 0.2 MG
     Route: 048
  4. VOLTAREN [Concomitant]
     Indication: PAIN
     Dosage: 1 ANZ
     Route: 048
     Dates: start: 20120505, end: 20120509
  5. AGGRENOX [Concomitant]
     Indication: CEREBROVASCULAR ACCIDENT

REACTIONS (3)
  - HAEMOGLOBIN DECREASED [None]
  - HAEMORRHAGE [None]
  - GASTROINTESTINAL STROMAL TUMOUR [None]
